FAERS Safety Report 9219047 (Version 1)
Quarter: 2013Q2

REPORT INFORMATION
  Report Type: Spontaneous
  Country: CH (occurrence: CH)
  Receive Date: 20130409
  Receipt Date: 20130409
  Transmission Date: 20140414
  Serious: Yes (Hospitalization)
  Sender: FDA-Public Use
  Company Number: PHHY2013CH033351

PATIENT
  Sex: Male
  Weight: 80 kg

DRUGS (4)
  1. GILENYA [Suspect]
     Indication: MULTIPLE SCLEROSIS
     Dosage: 0.5 MG, QD
     Route: 048
     Dates: end: 20130319
  2. ASPIRIN CARDIO [Concomitant]
     Dosage: 100 MG, QD
  3. TRIATEC [Concomitant]
  4. BELOC ZOK [Concomitant]

REACTIONS (1)
  - Chest discomfort [Recovered/Resolved]
